FAERS Safety Report 4661861-4 (Version None)
Quarter: 2005Q2

REPORT INFORMATION
  Report Type: 
  Country: None (occurrence: None)
  Receive Date: 20050513
  Receipt Date: 20050504
  Transmission Date: 20051028
  Serious: Yes (Hospitalization)
  Sender: FDA-Public Use
  Company Number: US-AMGEN-US131220

PATIENT
  Age: 61 Year
  Sex: Female

DRUGS (1)
  1. NEULASTA [Suspect]
     Indication: AGRANULOCYTOSIS
     Route: 058
     Dates: start: 20030101

REACTIONS (2)
  - DYSPNOEA [None]
  - LUNG INFILTRATION [None]
